FAERS Safety Report 6141765-0 (Version None)
Quarter: 2009Q2

REPORT INFORMATION
  Report Type: 
  Country: None (occurrence: None)
  Receive Date: 20090402
  Receipt Date: 20080716
  Transmission Date: 20091009
  Serious: No
  Sender: FDA-Public Use
  Company Number: US-ABBOTT-08P-163-0462878-00

PATIENT
  Sex: Female
  Weight: 59.02 kg

DRUGS (2)
  1. LUPRON DEPOT [Suspect]
     Indication: DRUG USE FOR UNKNOWN INDICATION
     Route: 030
     Dates: start: 20080715
  2. LUPRON DEPOT [Suspect]
     Indication: IN VITRO FERTILISATION

REACTIONS (1)
  - UNDERDOSE [None]
